FAERS Safety Report 7544599-5 (Version None)
Quarter: 2011Q2

REPORT INFORMATION
  Report Type: 
  Country: None (occurrence: None)
  Receive Date: 20110614
  Receipt Date: 20110606
  Transmission Date: 20111010
  Serious: Yes (Hospitalization)
  Sender: FDA-Public Use
  Company Number: US-BIOGENIDEC-2011BI011416

PATIENT
  Age: 42 Year
  Sex: Male

DRUGS (16)
  1. VITAMIN D [Concomitant]
     Route: 048
  2. TRAMADOL HCL [Concomitant]
     Indication: PAIN
     Route: 048
  3. FLUCONAZOLE [Concomitant]
  4. TRAZODONE HCL [Concomitant]
     Indication: SLEEP DISORDER
     Route: 048
  5. GABAPENTIN [Concomitant]
     Route: 048
  6. DIAZEPAM [Concomitant]
  7. ACETAMINOPHEN [Concomitant]
     Indication: PAIN
     Route: 048
  8. TYSABRI [Suspect]
     Indication: MULTIPLE SCLEROSIS
     Route: 042
     Dates: start: 20081008, end: 20110112
  9. TIZANIDINE HYDROCHLORIDE [Concomitant]
     Indication: MUSCLE SPASMS
  10. FAMOTIDINE [Concomitant]
  11. OXYGEN [Concomitant]
     Indication: SLEEP APNOEA SYNDROME
  12. VENTOLIN HFA [Concomitant]
     Indication: RESPIRATORY TRACT CONGESTION
     Route: 045
  13. VENTOLIN HFA [Concomitant]
     Indication: WHEEZING
     Route: 045
  14. NICODERM CQ [Concomitant]
     Indication: TOBACCO ABUSE
     Route: 023
  15. BACLOFEN [Concomitant]
     Indication: MUSCLE SPASMS
     Route: 048
  16. ADVIL LIQUI-GELS [Concomitant]
     Indication: PAIN

REACTIONS (5)
  - MOOD SWINGS [None]
  - MULTIPLE SCLEROSIS RELAPSE [None]
  - PSYCHOTIC BEHAVIOUR [None]
  - PYELONEPHRITIS [None]
  - SEPSIS [None]
